FAERS Safety Report 9249624 (Version 2)
Quarter: 2013Q3

REPORT INFORMATION
  Report Type: Spontaneous
  Country: US (occurrence: US)
  Receive Date: 20130423
  Receipt Date: 20130717
  Transmission Date: 20140515
  Serious: Yes (Other)
  Sender: FDA-Public Use
  Company Number: US-BRISTOL-MYERS SQUIBB COMPANY-17347667

PATIENT
  Age: 63 Year
  Sex: Female
  Weight: 71.2 kg

DRUGS (1)
  1. YERVOY [Suspect]
     Indication: METASTATIC MALIGNANT MELANOMA
     Dosage: LAST DOSE ON 4JAN13
     Dates: start: 20121108

REACTIONS (1)
  - Enterocolitis [Unknown]
